FAERS Safety Report 14354866 (Version 1)
Quarter: 2018Q1

REPORT INFORMATION
  Report Type: Report from Study
  Country: BG (occurrence: BG)
  Receive Date: 20180105
  Receipt Date: 20180105
  Transmission Date: 20180509
  Serious: Yes (Hospitalization, Other)
  Sender: FDA-Public Use
  Company Number: BG-BAYER-2018-000185

PATIENT
  Age: 37 Year
  Sex: Female

DRUGS (1)
  1. BETAFERON [Suspect]
     Active Substance: INTERFERON BETA-1B
     Indication: MULTIPLE SCLEROSIS
     Dosage: 8 IU, QOD
     Route: 058
     Dates: start: 200701

REACTIONS (9)
  - Muscular weakness [None]
  - Multiple sclerosis relapse [None]
  - Balance disorder [None]
  - Gait disturbance [None]
  - Dizziness [None]
  - Goitre [None]
  - Multiple sclerosis relapse [None]
  - Vertigo [None]
  - Neck mass [None]

NARRATIVE: CASE EVENT DATE: 201202
